FAERS Safety Report 23450923 (Version 1)
Quarter: 2024Q1

REPORT INFORMATION
  Report Type: Spontaneous
  Country: CN (occurrence: CN)
  Receive Date: 20240129
  Receipt Date: 20240129
  Transmission Date: 20240410
  Serious: Yes (Hospitalization, Other)
  Sender: FDA-Public Use
  Company Number: CN-EPICPHARMA-CN-2024EPCLIT00125

PATIENT
  Age: 33 Year
  Sex: Female
  Weight: 100 kg

DRUGS (7)
  1. LIDOCAINE HYDROCHLORIDE [Suspect]
     Active Substance: LIDOCAINE HYDROCHLORIDE
     Indication: Anaesthesia
     Dosage: 2% AFTER 3 MIN
     Route: 008
  2. LIDOCAINE HYDROCHLORIDE [Suspect]
     Active Substance: LIDOCAINE HYDROCHLORIDE
     Dosage: FRESH 0.83% ALKALIZED LIDOCAINE
     Route: 008
  3. LIDOCAINE HYDROCHLORIDE [Suspect]
     Active Substance: LIDOCAINE HYDROCHLORIDE
     Dosage: 2% LIDOCAINE PLUS 3 ML 5% SODIUM BICARBONATE
     Route: 008
  4. ROPIVACAINE [Suspect]
     Active Substance: ROPIVACAINE
     Indication: Anaesthesia
     Dosage: 0.75 % 10 MIN LATER
     Route: 008
  5. ROPIVACAINE [Suspect]
     Active Substance: ROPIVACAINE
     Dosage: 0.75 % 40 MIN LATER
     Route: 008
  6. SUFENTANIL [Concomitant]
     Active Substance: SUFENTANIL
     Indication: Anaesthesia
     Dosage: 5 MCG/ML AT 6 ML/H
     Route: 008
  7. SODIUM BICARBONATE [Concomitant]
     Active Substance: SODIUM BICARBONATE
     Indication: Anaesthesia
     Dosage: 5 %
     Route: 008

REACTIONS (3)
  - Anaesthetic complication neurological [Recovering/Resolving]
  - Drug interaction [Unknown]
  - Maternal exposure during delivery [Unknown]
